FAERS Safety Report 23118103 (Version 1)
Quarter: 2023Q4

REPORT INFORMATION
  Report Type: Spontaneous
  Country: PH (occurrence: PH)
  Receive Date: 20231027
  Receipt Date: 20231027
  Transmission Date: 20240110
  Serious: Yes (Death, Other)
  Sender: FDA-Public Use
  Company Number: PH-PFIZER INC-202300349521

PATIENT
  Age: 11 Month
  Sex: Female

DRUGS (1)
  1. AZITHROMYCIN [Suspect]
     Active Substance: AZITHROMYCIN
     Indication: Pneumonia
     Dosage: UNK
     Route: 042
     Dates: start: 202310, end: 202310

REACTIONS (5)
  - Death [Fatal]
  - Off label use [Unknown]
  - Skin discolouration [Unknown]
  - Musculoskeletal stiffness [Unknown]
  - Dyspnoea [Unknown]

NARRATIVE: CASE EVENT DATE: 20231001
